FAERS Safety Report 4583954-2 (Version None)
Quarter: 2005Q1

REPORT INFORMATION
  Report Type: 
  Country: None (occurrence: None)
  Receive Date: 20050216
  Receipt Date: 20050203
  Transmission Date: 20050727
  Serious: Yes (Hospitalization)
  Sender: FDA-Public Use
  Company Number: US-JNJFOC-20040401351

PATIENT
  Sex: Male
  Weight: 84.82 kg

DRUGS (6)
  1. DURAGESIC [Suspect]
     Route: 062
  2. DURAGESIC [Suspect]
     Route: 062
  3. DURAGESIC [Suspect]
     Route: 062
  4. DURAGESIC [Suspect]
     Route: 062
  5. DURAGESIC [Suspect]
     Route: 062
  6. LASIX [Concomitant]
     Indication: SWELLING
     Route: 049

REACTIONS (26)
  - ANXIETY [None]
  - ASTHENIA [None]
  - BLOOD UREA INCREASED [None]
  - BUNDLE BRANCH BLOCK RIGHT [None]
  - CONSTIPATION [None]
  - DEPENDENCE [None]
  - DEPRESSION [None]
  - DIZZINESS [None]
  - DRUG WITHDRAWAL SYNDROME [None]
  - DYSPNOEA [None]
  - ELECTROCARDIOGRAM ST SEGMENT ABNORMAL [None]
  - EXTERNAL EAR LESION EXCISION [None]
  - FALL [None]
  - HAEMATOCRIT DECREASED [None]
  - HAEMOGLOBIN DECREASED [None]
  - HEADACHE [None]
  - HYPERTENSION [None]
  - HYPOAESTHESIA [None]
  - INJURY [None]
  - INSOMNIA [None]
  - NAUSEA [None]
  - PHARMACEUTICAL PRODUCT COMPLAINT [None]
  - SKIN CANCER [None]
  - URINE KETONE BODY PRESENT [None]
  - VOMITING [None]
  - WEIGHT DECREASED [None]
